FAERS Safety Report 17699025 (Version 1)
Quarter: 2020Q2

REPORT INFORMATION
  Report Type: Spontaneous
  Country: US (occurrence: US)
  Receive Date: 20200423
  Receipt Date: 20200423
  Transmission Date: 20200714
  Serious: Yes (Hospitalization)
  Sender: FDA-Public Use
  Company Number: None

PATIENT
  Age: 64 Year
  Sex: Female

DRUGS (10)
  1. OMEPRAZOL E [Concomitant]
     Active Substance: OMEPRAZOLE
  2. VITD [Concomitant]
  3. PREDNISONE. [Concomitant]
     Active Substance: PREDNISONE
  4. TI MOLOL [Concomitant]
  5. LASIX [Concomitant]
     Active Substance: FUROSEMIDE
  6. ASPIRIN (BABY) [Concomitant]
     Active Substance: ASPIRIN
  7. MAGNESIUM [Concomitant]
     Active Substance: MAGNESIUM
  8. SPIRONOLACLONE [Concomitant]
  9. MYCOPHENOLIC DR [Suspect]
     Active Substance: MYCOPHENOLIC ACID
     Indication: RENAL TRANSPLANT
     Route: 048
     Dates: start: 20140113
  10. LIPITOR [Concomitant]
     Active Substance: ATORVASTATIN CALCIUM

REACTIONS (3)
  - Infection [None]
  - Ill-defined disorder [None]
  - Pneumonia [None]
